FAERS Safety Report 23139038 (Version 3)
Quarter: 2023Q4

REPORT INFORMATION
  Report Type: Spontaneous
  Country: US (occurrence: US)
  Receive Date: 20231102
  Receipt Date: 20231205
  Transmission Date: 20240110
  Serious: Yes (Hospitalization, Other)
  Sender: FDA-Public Use
  Company Number: US-JUBILANT CADISTA PHARMACEUTICALS-2023JUB00339

PATIENT
  Sex: Female

DRUGS (8)
  1. PREDNISONE [Suspect]
     Active Substance: PREDNISONE
     Indication: Staphylococcal infection
     Dosage: 1 TABLETS, 1X/DAY
     Dates: start: 2017
  2. METHYLPREDNISOLONE [Suspect]
     Active Substance: METHYLPREDNISOLONE
     Dosage: UNK
     Dates: start: 2016
  3. MORPHINE [Suspect]
     Active Substance: MORPHINE
     Dosage: UNK
     Dates: start: 201912
  4. UNSPECIFIED INGREDIENT [Concomitant]
     Active Substance: UNSPECIFIED INGREDIENT
  5. IBUPROFEN [Concomitant]
     Active Substance: IBUPROFEN
  6. CYCLOBENZAPRINE [Concomitant]
     Active Substance: CYCLOBENZAPRINE
  7. OXYCODONE [Concomitant]
     Active Substance: OXYCODONE
  8. UNSPECIFIED HERBAL SUPPLEMENT FOR LYME DISEASE [Concomitant]

REACTIONS (37)
  - Hypothermia [Unknown]
  - Respiratory fume inhalation disorder [Unknown]
  - Polycythaemia vera [Unknown]
  - Renal impairment [Unknown]
  - Type 2 diabetes mellitus [Recovering/Resolving]
  - Carpal tunnel syndrome [Unknown]
  - Eye swelling [Recovered/Resolved]
  - Peripheral swelling [Recovered/Resolved]
  - Leukocytosis [Unknown]
  - Arthritis [Unknown]
  - Stress [Unknown]
  - Weight decreased [Unknown]
  - Hepatic steatosis [Unknown]
  - Glucose tolerance impaired [Not Recovered/Not Resolved]
  - Illness [Unknown]
  - Glycosylated haemoglobin decreased [Unknown]
  - Arthralgia [Unknown]
  - Confusional state [Recovered/Resolved]
  - Stridor [Recovering/Resolving]
  - Frostbite [Unknown]
  - Gait inability [Unknown]
  - Tachycardia [Unknown]
  - Dyspnoea [Recovering/Resolving]
  - Wheezing [Unknown]
  - Sputum abnormal [Recovering/Resolving]
  - Productive cough [Recovering/Resolving]
  - Tachypnoea [Unknown]
  - Aspartate aminotransferase increased [Unknown]
  - Exostosis of external ear canal [Unknown]
  - Rhinitis [Unknown]
  - Carboxyhaemoglobin increased [Unknown]
  - Drug ineffective [Recovered/Resolved]
  - Off label use [Recovered/Resolved]
  - Asthenia [Not Recovered/Not Resolved]
  - Abdominal distension [Unknown]
  - Hypersensitivity [Unknown]
  - Hyperhidrosis [Unknown]

NARRATIVE: CASE EVENT DATE: 20170101
